FAERS Safety Report 20652611 (Version 3)
Quarter: 2022Q3

REPORT INFORMATION
  Report Type: Report from Study
  Country: IN (occurrence: IN)
  Receive Date: 20220330
  Receipt Date: 20220818
  Transmission Date: 20221027
  Serious: Yes (Other)
  Sender: FDA-Public Use
  Company Number: IN-Merck Healthcare KGaA-9307250

PATIENT
  Age: 32 Year
  Sex: Female
  Weight: 48 kg

DRUGS (3)
  1. CETUXIMAB [Suspect]
     Active Substance: CETUXIMAB
     Indication: Colorectal cancer metastatic
     Dosage: 800 MG, 2/M
     Route: 042
     Dates: start: 20210625
  2. CETUXIMAB [Suspect]
     Active Substance: CETUXIMAB
     Dosage: 600 MG, 2/M
     Route: 042
  3. GLYCOMET GP [Concomitant]
     Indication: Type 2 diabetes mellitus
     Dosage: UNK UNK, DAILY

REACTIONS (5)
  - Intestinal resection [Unknown]
  - Ileostomy [Unknown]
  - Weight decreased [Unknown]
  - Malignant neoplasm progression [Unknown]
  - Off label use [Unknown]

NARRATIVE: CASE EVENT DATE: 20211001
